FAERS Safety Report 4393438-2 (Version None)
Quarter: 2004Q3

REPORT INFORMATION
  Report Type: 
  Country: None (occurrence: None)
  Receive Date: 20040707
  Receipt Date: 20040707
  Transmission Date: 20050211
  Serious: No
  Sender: FDA-Public Use
  Company Number: None

PATIENT
  Sex: Female
  Weight: 97.0698 kg

DRUGS (14)
  1. COUMADIN [Suspect]
     Indication: CARDIOMYOPATHY
     Dosage: 5 MG PO DAILY
     Route: 048
     Dates: start: 20040519, end: 20040615
  2. COUMADIN [Suspect]
     Indication: CEREBROVASCULAR ACCIDENT
     Dosage: 5 MG PO DAILY
     Route: 048
     Dates: start: 20040519, end: 20040615
  3. ZETIA [Concomitant]
  4. PREDNISONE [Concomitant]
  5. ALBUTEROL [Concomitant]
  6. GLUCOPHAGE [Concomitant]
  7. HUMULIN U [Concomitant]
  8. LASIX [Concomitant]
  9. TEMAZEPAM [Concomitant]
  10. HUMALOG [Concomitant]
  11. SPIRONOLACTONE [Concomitant]
  12. LIPITOR [Concomitant]
  13. NORVASC [Concomitant]
  14. VERAPAMIL [Concomitant]

REACTIONS (5)
  - PAIN [None]
  - RASH PRURITIC [None]
  - SELF-MEDICATION [None]
  - SKIN NECROSIS [None]
  - SKIN ULCER [None]
